FAERS Safety Report 23059560 (Version 2)
Quarter: 2023Q4

REPORT INFORMATION
  Report Type: Spontaneous
  Country: US (occurrence: US)
  Receive Date: 20231012
  Receipt Date: 20231207
  Transmission Date: 20240110
  Serious: No
  Sender: FDA-Public Use
  Company Number: US-EPIZYME, INC.-2023USEPIZYME0918

PATIENT
  Age: 82 Year
  Sex: Male
  Weight: 80.73 kg

DRUGS (9)
  1. TAZVERIK [Suspect]
     Active Substance: TAZEMETOSTAT HYDROBROMIDE
     Indication: Follicular lymphoma stage II
     Dosage: 800 MG, BID
     Route: 048
  2. TAZVERIK [Suspect]
     Active Substance: TAZEMETOSTAT HYDROBROMIDE
     Indication: Follicular lymphoma
     Dosage: 600 MG, TWICE DAILY
     Route: 048
     Dates: start: 202304
  3. BRUKINSA [Concomitant]
     Active Substance: ZANUBRUTINIB
  4. AMLODIPINE [Concomitant]
     Active Substance: AMLODIPINE BESYLATE
  5. AVAPRO [Concomitant]
     Active Substance: IRBESARTAN
  6. EPLERENONE [Concomitant]
     Active Substance: EPLERENONE
  7. FLOMAX [Concomitant]
     Active Substance: TAMSULOSIN HYDROCHLORIDE
  8. LIPITOR [Concomitant]
     Active Substance: ATORVASTATIN CALCIUM
  9. METOPROLOL [Concomitant]
     Active Substance: METOPROLOL

REACTIONS (6)
  - Dysgeusia [Unknown]
  - Respiratory tract infection [Recovered/Resolved with Sequelae]
  - Dysphonia [Unknown]
  - Hyperkeratosis [Unknown]
  - Headache [Unknown]
  - Impaired healing [Not Recovered/Not Resolved]

NARRATIVE: CASE EVENT DATE: 20230501
